FAERS Safety Report 19625009 (Version 1)
Quarter: 2021Q3

REPORT INFORMATION
  Report Type: Spontaneous
  Country: US (occurrence: US)
  Receive Date: 20210728
  Receipt Date: 20210728
  Transmission Date: 20211014
  Serious: No
  Sender: FDA-Public Use
  Company Number: NVSC2021US148566

PATIENT
  Sex: Male

DRUGS (1)
  1. COSYNTROPINE [Suspect]
     Active Substance: COSYNTROPIN
     Indication: PRODUCT USED FOR UNKNOWN INDICATION
     Dosage: 0.25 MG, UNKNOWN
     Route: 065

REACTIONS (2)
  - Product availability issue [Unknown]
  - Cortisol decreased [Unknown]
